FAERS Safety Report 7920334-3 (Version None)
Quarter: 2011Q4

REPORT INFORMATION
  Report Type: 
  Country: None (occurrence: None)
  Receive Date: 20111117
  Receipt Date: 20111107
  Transmission Date: 20120403
  Serious: Yes (Hospitalization, Other)
  Sender: FDA-Public Use
  Company Number: FR-ELI_LILLY_AND_COMPANY-FR201111001709

PATIENT
  Sex: Male

DRUGS (6)
  1. TERCIAN [Concomitant]
     Dosage: 75 MG, QD
     Route: 048
     Dates: start: 20090601, end: 20090917
  2. PROZAC [Suspect]
     Dosage: 60 MG, QD
     Route: 048
     Dates: start: 20090601, end: 20090917
  3. PROPRANOLOL [Concomitant]
     Dosage: 80 MG, QD
     Route: 048
     Dates: start: 20090601, end: 20090917
  4. OLMIFON [Concomitant]
     Dosage: UNK
     Route: 048
     Dates: start: 20090601, end: 20090917
  5. ZYPREXA [Suspect]
     Dosage: 20 MG, QD
     Route: 048
     Dates: start: 20090601, end: 20090917
  6. SUBUTEX [Concomitant]
     Dosage: 16 MG, QD
     Route: 048
     Dates: start: 20090601, end: 20090917

REACTIONS (2)
  - PANCREATITIS [None]
  - CONFUSIONAL STATE [None]
